FAERS Safety Report 12542184 (Version 2)
Quarter: 2016Q3

REPORT INFORMATION
  Report Type: Report from Study
  Country: US (occurrence: US)
  Receive Date: 20160708
  Receipt Date: 20160729
  Transmission Date: 20161109
  Serious: Yes (Other)
  Sender: FDA-Public Use
  Company Number: US-SAOL THERAPEUTICS-2016SAO00069

PATIENT
  Age: 30 Year
  Sex: Female
  Weight: 85.26 kg

DRUGS (13)
  1. DILAUDID [Suspect]
     Active Substance: HYDROMORPHONE HYDROCHLORIDE
     Dosage: 0.1501 MG, \DAY
     Dates: start: 20160513
  2. DILAUDID [Suspect]
     Active Substance: HYDROMORPHONE HYDROCHLORIDE
     Dosage: 0.3832 MG, \DAY
     Dates: start: 20160523
  3. GABLOFEN [Suspect]
     Active Substance: BACLOFEN
     Dosage: 160.5 ?G, \DAY
     Route: 037
     Dates: start: 20160504
  4. LIORESAL [Suspect]
     Active Substance: BACLOFEN
     Dosage: 125 ?G, \DAY
     Route: 037
     Dates: end: 201605
  5. LIORESAL [Suspect]
     Active Substance: BACLOFEN
     Dosage: 268.8 ?G, \DAY
     Route: 037
     Dates: start: 20160513
  6. LIORESAL [Suspect]
     Active Substance: BACLOFEN
     Dosage: 383.2 ?G, \DAY
     Route: 037
     Dates: start: 20160523
  7. DILAUDID [Suspect]
     Active Substance: HYDROMORPHONE HYDROCHLORIDE
     Dosage: 0.1250 MG, \DAY
     Dates: start: 20160505
  8. MORPHINE IR [Concomitant]
     Active Substance: MORPHINE
     Dosage: UNK
  9. LIORESAL [Suspect]
     Active Substance: BACLOFEN
     Dosage: 150.1 ?G, \DAY
     Route: 037
     Dates: start: 20160513
  10. LIORESAL [Suspect]
     Active Substance: BACLOFEN
     Indication: MULTIPLE SCLEROSIS
     Dosage: 160.5 ?G, \DAY
     Route: 037
     Dates: start: 20160504
  11. LIORESAL [Suspect]
     Active Substance: BACLOFEN
     Dosage: 165.4 ?G, \DAY
     Route: 037
     Dates: start: 20160523
  12. DILAUDID [Suspect]
     Active Substance: HYDROMORPHONE HYDROCHLORIDE
     Dosage: 0.2688 MG, \DAY
     Dates: start: 20160513
  13. DILAUDID [Suspect]
     Active Substance: HYDROMORPHONE HYDROCHLORIDE
     Dosage: 0.1654 MG, \DAY
     Dates: start: 20160523

REACTIONS (3)
  - Incision site haemorrhage [Recovered/Resolved]
  - Implant site extravasation [Recovered/Resolved]
  - Dizziness [Recovered/Resolved]

NARRATIVE: CASE EVENT DATE: 20160506
